FAERS Safety Report 6309581-4 (Version None)
Quarter: 2009Q3

REPORT INFORMATION
  Report Type: 
  Country: None (occurrence: None)
  Receive Date: 20090814
  Receipt Date: 20090804
  Transmission Date: 20100115
  Serious: Yes (Other)
  Sender: FDA-Public Use
  Company Number: PHHY2009MX33096

PATIENT
  Age: 84 Year
  Sex: Female

DRUGS (1)
  1. EXELON [Suspect]
     Indication: DEMENTIA ALZHEIMER'S TYPE
     Dosage: 1 PATCH (5CM2) PER DAY
     Route: 062
     Dates: start: 20090615, end: 20090717

REACTIONS (2)
  - CEREBROVASCULAR DISORDER [None]
  - HYDROCEPHALUS [None]
